FAERS Safety Report 13446625 (Version 1)
Quarter: 2017Q2

REPORT INFORMATION
  Report Type: Spontaneous
  Country: US (occurrence: US)
  Receive Date: 20170414
  Receipt Date: 20170414
  Transmission Date: 20170830
  Serious: Yes (Hospitalization)
  Sender: FDA-Public Use
  Company Number: None

PATIENT
  Age: 10 Month
  Sex: Male

DRUGS (2)
  1. TOBRAMYCIN 300MG/5ML [Suspect]
     Active Substance: TOBRAMYCIN
     Indication: CYSTIC FIBROSIS
     Dosage: 300MG/5ML BID INHALATION
     Route: 055
  2. BETHKIS [Suspect]
     Active Substance: TOBRAMYCIN
     Route: 055
     Dates: start: 20170124, end: 20170213

REACTIONS (1)
  - Condition aggravated [None]

NARRATIVE: CASE EVENT DATE: 20170410
